FAERS Safety Report 9341923 (Version 1)
Quarter: 2013Q2

REPORT INFORMATION
  Report Type: Spontaneous
  Country: FR (occurrence: FR)
  Receive Date: 20130611
  Receipt Date: 20130611
  Transmission Date: 20140414
  Serious: Yes (Hospitalization)
  Sender: FDA-Public Use
  Company Number: FR-BAYER-2013-071105

PATIENT
  Age: 66 Year
  Sex: Male

DRUGS (3)
  1. IZILOX [Suspect]
     Dosage: UNK
     Dates: start: 201301, end: 20130319
  2. TAVANIC [Suspect]
     Indication: DISSEMINATED TUBERCULOSIS
     Dosage: 500 MG, QD
     Dates: start: 20121023, end: 201301
  3. DEXAMBUTOL [Suspect]
     Indication: DISSEMINATED TUBERCULOSIS
     Dosage: UNK
     Dates: start: 20121023, end: 20130319

REACTIONS (1)
  - Retinal detachment [Not Recovered/Not Resolved]
